FAERS Safety Report 13020169 (Version 1)
Quarter: 2016Q4

REPORT INFORMATION
  Report Type: Spontaneous
  Country: GR (occurrence: GR)
  Receive Date: 20161212
  Receipt Date: 20161212
  Transmission Date: 20170207
  Serious: Yes (Hospitalization)
  Sender: FDA-Public Use
  Company Number: GR-SA-2016SA225282

PATIENT
  Age: 65 Year
  Sex: Male

DRUGS (2)
  1. APROVEL [Suspect]
     Active Substance: IRBESARTAN
     Route: 048
     Dates: start: 2008
  2. TENORMIN [Concomitant]
     Active Substance: ATENOLOL

REACTIONS (6)
  - Prostatitis [Unknown]
  - Urinary tract infection [Unknown]
  - Fibula fracture [Unknown]
  - Tibia fracture [Unknown]
  - Epididymitis [Unknown]
  - Road traffic accident [Unknown]

NARRATIVE: CASE EVENT DATE: 2011
